FAERS Safety Report 12524822 (Version 17)
Quarter: 2019Q4

REPORT INFORMATION
  Report Type: Report from Study
  Country: CA (occurrence: CA)
  Receive Date: 20160704
  Receipt Date: 20191025
  Transmission Date: 20200122
  Serious: Yes (Death, Hospitalization, Other)
  Sender: FDA-Public Use
  Company Number: PHHY2012CA068421

PATIENT
  Age: 67 Year
  Sex: Male

DRUGS (11)
  1. JAMP ALLOPURINOL [Concomitant]
     Indication: GOUT
     Dosage: 200 MG, QD (1 PILL WITH BREAKFAST)
     Route: 065
  2. SANDOSTATIN LAR DEPOT [Suspect]
     Active Substance: OCTREOTIDE ACETATE
     Dosage: 30 MG, QMO (EVERY 4 WEEKS)
     Route: 030
  3. SANDOSTATIN LAR DEPOT [Suspect]
     Active Substance: OCTREOTIDE ACETATE
     Dosage: 30 MG, QMO
     Route: 030
     Dates: start: 20130910
  4. EZETIMIB SANDOZ [Concomitant]
     Indication: BLOOD CHOLESTEROL ABNORMAL
     Dosage: 10 MG, QD (BED TIME)
     Route: 065
  5. INVOKANA [Concomitant]
     Active Substance: CANAGLIFLOZIN
     Indication: DIABETES MELLITUS
     Dosage: 100 MG, QD (BEFORE BREAKFAST)
     Route: 065
  6. SANDOSTATIN LAR DEPOT [Suspect]
     Active Substance: OCTREOTIDE ACETATE
     Dosage: 30 MG, QMO (EVERY 4 WEEKS)
     Route: 030
     Dates: start: 20190722
  7. BISOPROLOL SANDOZ [Concomitant]
     Active Substance: BISOPROLOL
     Indication: PRODUCT USED FOR UNKNOWN INDICATION
     Dosage: 5 MG, AT BREAKFAST
     Route: 065
  8. GLUCOPHAGE [Concomitant]
     Active Substance: METFORMIN HYDROCHLORIDE
     Indication: PRODUCT USED FOR UNKNOWN INDICATION
     Route: 065
  9. SANDOSTATIN LAR DEPOT [Suspect]
     Active Substance: OCTREOTIDE ACETATE
     Indication: METASTATIC CARCINOID TUMOUR
     Dosage: 20 MG, QMO
     Route: 030
     Dates: start: 20120709
  10. JANUVIA [Concomitant]
     Active Substance: SITAGLIPTIN PHOSPHATE
     Indication: DIABETES MELLITUS
     Dosage: 100 MG, QD (1 PILL WITH BREAKFAST)
     Route: 065
  11. GLUMETZA [Concomitant]
     Active Substance: METFORMIN HYDROCHLORIDE
     Indication: DIABETES MELLITUS
     Dosage: 1500 MG (500MG 3 PILLS), QD
     Route: 065

REACTIONS (17)
  - Metastases to liver [Fatal]
  - Haemorrhoids [Recovering/Resolving]
  - Type 2 diabetes mellitus [Unknown]
  - Diarrhoea [Unknown]
  - Body temperature decreased [Not Recovered/Not Resolved]
  - Blood pressure systolic increased [Unknown]
  - Intestinal strangulation [Unknown]
  - Urinary tract infection [Unknown]
  - Dysuria [Unknown]
  - Calculus urinary [Unknown]
  - Needle issue [Unknown]
  - Renal failure [Fatal]
  - Intestinal perforation [Unknown]
  - Hyperglycaemia [Unknown]
  - Heart rate decreased [Unknown]
  - Hepatomegaly [Fatal]
  - Prostatic specific antigen increased [Unknown]

NARRATIVE: CASE EVENT DATE: 20151205
